FAERS Safety Report 4825810-8 (Version None)
Quarter: 2005Q4

REPORT INFORMATION
  Report Type: 
  Country: None (occurrence: None)
  Receive Date: 20051111
  Receipt Date: 20051108
  Transmission Date: 20060501
  Serious: Yes (Other)
  Sender: FDA-Public Use
  Company Number: ES-GLAXOSMITHKLINE-B0400134A

PATIENT
  Age: 48 Year
  Sex: Female

DRUGS (1)
  1. ZYNTABAC [Suspect]
     Route: 065
     Dates: start: 20030101

REACTIONS (4)
  - CONJUNCTIVITIS [None]
  - DRY EYE [None]
  - EYE IRRITATION [None]
  - KERATITIS [None]
